FAERS Safety Report 5565020-2 (Version None)
Quarter: 2007Q4

REPORT INFORMATION
  Report Type: 
  Country: None (occurrence: None)
  Receive Date: 20071218
  Receipt Date: 20071203
  Transmission Date: 20080405
  Serious: Yes (Other)
  Sender: FDA-Public Use
  Company Number: JP-GENENTECH-252643

PATIENT
  Sex: Male

DRUGS (4)
  1. BEVACIZUMAB [Suspect]
     Indication: COLON CANCER
     Dosage: 5 MG/KG, UNK
     Route: 042
     Dates: start: 20070905
  2. OXALIPLATIN [Suspect]
     Indication: COLON CANCER
     Dosage: 80 MG/KG, UNK
     Route: 042
     Dates: start: 20070905
  3. FLUOROURACIL [Suspect]
     Indication: COLON CANCER
     Dosage: 400 MG/M2, UNK
     Route: 042
     Dates: start: 20070905
  4. ISOVORIN [Suspect]
     Indication: COLON CANCER
     Dosage: 100 MG/M2, UNK
     Route: 042
     Dates: start: 20070905

REACTIONS (1)
  - INTERSTITIAL LUNG DISEASE [None]
